FAERS Safety Report 10425100 (Version 3)
Quarter: 2014Q3

REPORT INFORMATION
  Report Type: Spontaneous
  Country: JP (occurrence: JP)
  Receive Date: 20140902
  Receipt Date: 20140909
  Transmission Date: 20150326
  Serious: Yes (Hospitalization, Other)
  Sender: FDA-Public Use
  Company Number: JP-VIIV HEALTHCARE LIMITED-B0551326A

PATIENT
  Age: 39 Year
  Sex: Male

DRUGS (5)
  1. ZIAGEN [Suspect]
     Active Substance: ABACAVIR SULFATE
     Indication: HIV INFECTION
     Dosage: 300MG TWICE PER DAY
     Route: 048
     Dates: start: 20071113
  2. STOCRIN [Suspect]
     Active Substance: EFAVIRENZ
     Indication: HIV INFECTION
     Dosage: 600MG PER DAY
     Route: 048
     Dates: start: 20071113
  3. EPIVIR [Suspect]
     Active Substance: LAMIVUDINE
     Indication: HIV INFECTION
     Dosage: 100MG THREE TIMES PER DAY
     Route: 048
     Dates: start: 20071113, end: 20080110
  4. ZERIT [Concomitant]
     Active Substance: STAVUDINE
     Indication: HIV INFECTION
     Dosage: 30MG TWICE PER DAY
     Route: 048
     Dates: start: 20080111
  5. NOVORAPID [Concomitant]
     Active Substance: INSULIN ASPART
     Route: 058
     Dates: start: 2003

REACTIONS (8)
  - Normochromic normocytic anaemia [Recovering/Resolving]
  - Mucosal discolouration [Unknown]
  - Aplasia pure red cell [Recovering/Resolving]
  - Sinus tachycardia [Unknown]
  - Dyspnoea exertional [Unknown]
  - Palpitations [Unknown]
  - Conjunctival pallor [Unknown]
  - Vertigo [Recovered/Resolved]

NARRATIVE: CASE EVENT DATE: 20080110
